FAERS Safety Report 7551518-4 (Version None)
Quarter: 2011Q2

REPORT INFORMATION
  Report Type: 
  Country: None (occurrence: None)
  Receive Date: 20110609
  Receipt Date: 20110524
  Transmission Date: 20111010
  Serious: Yes (Death, Hospitalization)
  Sender: FDA-Public Use
  Company Number: 2011MA006443

PATIENT
  Age: 20 Year
  Sex: Male

DRUGS (5)
  1. TACROLIMUS [Concomitant]
  2. FLUDARABINE PHOSPHATE [Suspect]
     Indication: LYMPHOCYTIC LEUKAEMIA
     Dosage: 150 MG/M2
  3. CYTARABINE [Concomitant]
  4. MIZORIBINE [Concomitant]
  5. CAMPATH [Concomitant]

REACTIONS (9)
  - CYTOMEGALOVIRUS CHORIORETINITIS [None]
  - SOMNOLENCE [None]
  - MUSCULAR WEAKNESS [None]
  - ENCEPHALITIS CYTOMEGALOVIRUS [None]
  - NEUROLOGICAL DECOMPENSATION [None]
  - NEUROPATHY PERIPHERAL [None]
  - DISTURBANCE IN ATTENTION [None]
  - MENTAL STATUS CHANGES [None]
  - PANCYTOPENIA [None]
